FAERS Safety Report 24941888 (Version 1)
Quarter: 2025Q1

REPORT INFORMATION
  Report Type: Spontaneous
  Country: US (occurrence: US)
  Receive Date: 20250207
  Receipt Date: 20250207
  Transmission Date: 20250409
  Serious: Yes (Other)
  Sender: BAYER HEALTHCARE PHARMACEUTICALS INC.
  Company Number: US-BAYER-2025A015931

PATIENT
  Age: 17 Year
  Sex: Male

DRUGS (2)
  1. JIVI [Suspect]
     Active Substance: DAMOCTOCOG ALFA PEGOL
     Indication: Prophylaxis
     Dosage: 1145 UNITS, INFUSE 3000 UNITS (+/-10%) EVERY OTHER DAY FOR PROPHYLAXIS AND DAILY AS NEEDED FOR BLEED
  2. JIVI [Suspect]
     Active Substance: DAMOCTOCOG ALFA PEGOL
     Indication: Haemorrhage
     Dosage: 1 DF, QD
     Dates: start: 20250128

REACTIONS (1)
  - Muscle haemorrhage [None]

NARRATIVE: CASE EVENT DATE: 20250128
